FAERS Safety Report 24442280 (Version 2)
Quarter: 2024Q4

REPORT INFORMATION
  Report Type: Report from Study
  Country: CL (occurrence: CL)
  Receive Date: 20241016
  Receipt Date: 20241017
  Transmission Date: 20250115
  Serious: No
  Sender: ROCHE
  Company Number: CL-ROCHE-3531935

PATIENT
  Age: 4 Year
  Sex: Male
  Weight: 21.0 kg

DRUGS (2)
  1. HEMLIBRA [Suspect]
     Active Substance: EMICIZUMAB-KXWH
     Indication: Haemophilia
     Dosage: DOSE OF 60 ML, 2 TIMES A MONTH (60 MG), ADMINISTRATION DAYS: MONDAY DAWNS?STRENGTH- 60 MG/ 0.4 ML
     Route: 065
     Dates: start: 20240115
  2. MELATONIN [Concomitant]
     Active Substance: MELATONIN
     Dosage: DOSE AND FREQUENCY WERE NOT REPORTED
     Dates: start: 2022

REACTIONS (1)
  - Weight increased [Unknown]

NARRATIVE: CASE EVENT DATE: 20240115
